FAERS Safety Report 5987239-9 (Version None)
Quarter: 2008Q4

REPORT INFORMATION
  Report Type: 
  Country: None (occurrence: None)
  Receive Date: 20081203
  Receipt Date: 20081201
  Transmission Date: 20090506
  Serious: Yes (Life-Threatening, Hospitalization, Other)
  Sender: FDA-Public Use
  Company Number: GXKR2008DE11347

PATIENT
  Sex: Female
  Weight: 74 kg

DRUGS (3)
  1. CARBAMAZEPINE [Suspect]
     Dosage: 400 MG, BID
     Dates: start: 19980101
  2. HYDROCHLOROTHIAZDE TAB [Suspect]
     Dosage: 25  MG, BID, ORAL
     Route: 048
     Dates: start: 19980101
  3. THIORIDAZINE HYDROCHLORIDE [Suspect]
     Dosage: 1 DF, BID, ORAL
     Route: 048
     Dates: start: 19980101, end: 20080912

REACTIONS (3)
  - DRUG INTERACTION [None]
  - LONG QT SYNDROME [None]
  - TORSADE DE POINTES [None]
